FAERS Safety Report 24867539 (Version 2)
Quarter: 2025Q1

REPORT INFORMATION
  Report Type: Spontaneous
  Country: US (occurrence: US)
  Receive Date: 20250121
  Receipt Date: 20250217
  Transmission Date: 20250409
  Serious: Yes (Other)
  Sender: SANDOZ
  Company Number: US-SANDOZ-SDZ2025US002329

PATIENT
  Age: 64 Year
  Sex: Female

DRUGS (4)
  1. ATIVAN [Suspect]
     Active Substance: LORAZEPAM
     Indication: Product used for unknown indication
     Route: 065
  2. COMPAZINE [Suspect]
     Active Substance: PROCHLORPERAZINE MALEATE
     Indication: Product used for unknown indication
     Route: 065
  3. TUKYSA [Suspect]
     Active Substance: TUCATINIB
     Indication: Product used for unknown indication
     Dosage: 300 MG, BID
     Route: 048
     Dates: start: 20241108
  4. ZOFRAN [Suspect]
     Active Substance: ONDANSETRON HYDROCHLORIDE
     Indication: Product used for unknown indication
     Route: 065

REACTIONS (15)
  - Neuropathy peripheral [Unknown]
  - Fatigue [Unknown]
  - Illness [Unknown]
  - Bone disorder [Unknown]
  - Insomnia [Unknown]
  - Alopecia [Unknown]
  - Weight decreased [Unknown]
  - Muscle spasms [Unknown]
  - Nausea [Unknown]
  - Pain [Unknown]
  - Pain in extremity [Unknown]
  - Skin exfoliation [Unknown]
  - Tendonitis [Unknown]
  - Diarrhoea [Unknown]
  - Gait inability [Unknown]
